FAERS Safety Report 24010084 (Version 2)
Quarter: 2025Q1

REPORT INFORMATION
  Report Type: Report from Study
  Country: US (occurrence: US)
  Receive Date: 20240625
  Receipt Date: 20250105
  Transmission Date: 20250409
  Serious: No
  Sender: AMGEN
  Company Number: US-AMGEN-USASP2024122862

PATIENT
  Age: 67 Year
  Sex: Male
  Weight: 62.3 kg

DRUGS (2)
  1. NPLATE [Suspect]
     Active Substance: ROMIPLOSTIM
     Indication: Immune thrombocytopenia
     Route: 065
  2. NPLATE [Suspect]
     Active Substance: ROMIPLOSTIM
     Dosage: 676 MICROGRAM, QWK
     Route: 058
     Dates: start: 20241002

REACTIONS (4)
  - Product storage error [Unknown]
  - Intercepted product administration error [Unknown]
  - Ataxia [Unknown]
  - Dry skin [Unknown]

NARRATIVE: CASE EVENT DATE: 20240620
